FAERS Safety Report 12618931 (Version 3)
Quarter: 2016Q3

REPORT INFORMATION
  Report Type: Report from Study
  Country: BR (occurrence: BR)
  Receive Date: 20160803
  Receipt Date: 20160829
  Transmission Date: 20161109
  Serious: Yes (Hospitalization, Other)
  Sender: FDA-Public Use
  Company Number: BR-JNJFOC-20160614585

PATIENT
  Sex: Male

DRUGS (2)
  1. STELARA [Suspect]
     Active Substance: USTEKINUMAB
     Indication: PSORIASIS
     Route: 058
     Dates: start: 20160518, end: 20160617
  2. CICLOSPORIN [Concomitant]
     Active Substance: CYCLOSPORINE
     Route: 065

REACTIONS (7)
  - Psoriasis [Unknown]
  - Pruritus [Recovered/Resolved]
  - Lymphoma [Not Recovered/Not Resolved]
  - Dry skin [Unknown]
  - Infection [Unknown]
  - Drug ineffective [Unknown]
  - Skin fissures [Unknown]

NARRATIVE: CASE EVENT DATE: 2016
